FAERS Safety Report 19767008 (Version 1)
Quarter: 2021Q3

REPORT INFORMATION
  Report Type: Spontaneous
  Country: US (occurrence: US)
  Receive Date: 20210830
  Receipt Date: 20210830
  Transmission Date: 20211014
  Serious: Yes (Life-Threatening, Hospitalization)
  Sender: FDA-Public Use
  Company Number: None

PATIENT
  Age: 78 Year
  Sex: Female
  Weight: 122.5 kg

DRUGS (1)
  1. CEFTRIAXONE IV [Suspect]
     Active Substance: CEFTRIAXONE
     Indication: PNEUMONIA
     Dates: start: 20210824, end: 20210824

REACTIONS (1)
  - Stevens-Johnson syndrome [None]

NARRATIVE: CASE EVENT DATE: 20210825
